FAERS Safety Report 19054235 (Version 1)
Quarter: 2021Q1

REPORT INFORMATION
  Report Type: Spontaneous
  Country: US (occurrence: US)
  Receive Date: 20210325
  Receipt Date: 20210325
  Transmission Date: 20210420
  Serious: No
  Sender: FDA-Public Use
  Company Number: US-MACLEODS PHARMACEUTICALS US LTD-MAC2021030515

PATIENT

DRUGS (3)
  1. LEVOFLOXACIN 500 MG TABLET [Suspect]
     Active Substance: LEVOFLOXACIN
     Indication: DEVICE RELATED INFECTION
     Dosage: 1 DOSAGE FORM, QD, FOR 14 DAYS BUT STOPPED AFTER TAKING FOR 10DAYS, (NDC: 33342?0022?08)
     Route: 048
     Dates: start: 20210201, end: 20210211
  2. HYDROCODONE [Concomitant]
     Active Substance: HYDROCODONE
     Dosage: UNK, MINIMAL DOSE
     Route: 065
  3. HYDROCODONE [Concomitant]
     Active Substance: HYDROCODONE
     Indication: ARTHROPATHY
     Dosage: 5 MILLIGRAM, PRN
     Route: 065

REACTIONS (4)
  - Pain [Recovering/Resolving]
  - Arthralgia [Recovering/Resolving]
  - Tendon pain [Recovering/Resolving]
  - Product dose omission issue [Unknown]

NARRATIVE: CASE EVENT DATE: 20210203
